FAERS Safety Report 7148383-6 (Version None)
Quarter: 2010Q4

REPORT INFORMATION
  Report Type: 
  Country: None (occurrence: None)
  Receive Date: 20101209
  Receipt Date: 20101203
  Transmission Date: 20110411
  Serious: Yes (Death)
  Sender: FDA-Public Use
  Company Number: US-CELGENEUS-163-21880-10120685

PATIENT
  Sex: Female

DRUGS (14)
  1. REVLIMID [Suspect]
     Route: 048
     Dates: start: 20100820, end: 20100101
  2. REQUIP [Concomitant]
     Route: 048
  3. LASIX [Concomitant]
     Route: 048
  4. LACTULOSE [Concomitant]
     Dosage: 10G/15
     Route: 048
  5. VOLTAREN [Concomitant]
     Route: 065
  6. SYNTHROID [Concomitant]
     Route: 048
  7. LORAZEPAM [Concomitant]
     Route: 048
  8. SYMBICORT [Concomitant]
     Dosage: 160-4.5
     Route: 055
  9. VITAMIN D [Concomitant]
     Dosage: 50000 UNIT
     Route: 048
  10. SPIRIVA [Concomitant]
     Route: 048
  11. STOOL SOFTENER [Concomitant]
     Dosage: 100-30
     Route: 048
  12. MULTI-VITAMINS [Concomitant]
     Route: 048
  13. POTASSIUM CHLORIDE [Concomitant]
     Route: 048
  14. EXJADE [Concomitant]
     Route: 048

REACTIONS (1)
  - DEATH [None]
